FAERS Safety Report 10625526 (Version 1)
Quarter: 2014Q4

REPORT INFORMATION
  Report Type: Spontaneous
  Country: US (occurrence: US)
  Receive Date: 20141204
  Receipt Date: 20141204
  Transmission Date: 20150529
  Serious: No
  Sender: FDA-Public Use
  Company Number: US-PFIZER INC-2014331609

PATIENT
  Age: 34 Year
  Sex: Female
  Weight: 79.37 kg

DRUGS (2)
  1. PEROXIN [Concomitant]
     Dosage: 20 MG, UNK
  2. GABAPENTIN. [Suspect]
     Active Substance: GABAPENTIN
     Indication: FIBROMYALGIA
     Dosage: 300 MG, UNK

REACTIONS (1)
  - Amnesia [Unknown]
